FAERS Safety Report 7080745-8 (Version None)
Quarter: 2010Q4

REPORT INFORMATION
  Report Type: 
  Country: None (occurrence: None)
  Receive Date: 20101103
  Receipt Date: 20101022
  Transmission Date: 20110411
  Serious: Yes (Other)
  Sender: FDA-Public Use
  Company Number: US-JNJFOC-20101007686

PATIENT
  Age: 55 Year
  Sex: Female

DRUGS (9)
  1. KETOCONAZOLE [Suspect]
     Indication: ACNE
     Route: 065
  2. DOXYCYCLINE [Suspect]
     Indication: ACNE
     Route: 065
  3. MINOCYCLINE HCL [Suspect]
     Indication: ACNE
     Route: 065
  4. BENZOYL PEROXIDE [Suspect]
     Indication: ACNE
     Route: 061
  5. CLINDAMYCIN [Suspect]
     Indication: ACNE
     Route: 061
  6. DAPSONE [Suspect]
     Indication: ACNE
     Route: 061
  7. METRONIDAZOLE [Suspect]
     Indication: ACNE
     Route: 061
  8. 1% HYDROCORTISONE PREPARATION [Suspect]
     Indication: ACNE
     Route: 061
  9. CLINDAMYCIN [Suspect]
     Route: 065

REACTIONS (14)
  - ACNE PUSTULAR [None]
  - ARTHRALGIA [None]
  - ATYPICAL MYCOBACTERIUM TEST POSITIVE [None]
  - BACTERIAL INFECTION [None]
  - DRUG INEFFECTIVE [None]
  - DRUG INEFFECTIVE FOR UNAPPROVED INDICATION [None]
  - ERYTHEMA [None]
  - FUNGAL INFECTION [None]
  - GASTROINTESTINAL DISORDER [None]
  - HAEMORRHAGE [None]
  - HERPES VIRUS INFECTION [None]
  - LYMPHADENOPATHY [None]
  - MALAISE [None]
  - SKIN NODULE [None]
